FAERS Safety Report 24667087 (Version 1)
Quarter: 2024Q4

REPORT INFORMATION
  Report Type: Spontaneous
  Country: US (occurrence: US)
  Receive Date: 20241126
  Receipt Date: 20241126
  Transmission Date: 20250115
  Serious: Yes (Hospitalization)
  Sender: PFIZER
  Company Number: US-PFIZER INC-202400307300

PATIENT
  Age: 89 Year
  Sex: Female
  Weight: 50.8 kg

DRUGS (1)
  1. VYNDAMAX [Suspect]
     Active Substance: TAFAMIDIS
     Indication: Cardiac murmur
     Dosage: 61MG CAPSULE ONCE A DAY
     Dates: start: 2023, end: 2024

REACTIONS (3)
  - Illness [Unknown]
  - Fall [Unknown]
  - Weight decreased [Unknown]

NARRATIVE: CASE EVENT DATE: 20240101
